FAERS Safety Report 19002491 (Version 1)
Quarter: 2021Q1

REPORT INFORMATION
  Report Type: Spontaneous
  Country: US (occurrence: US)
  Receive Date: 20210312
  Receipt Date: 20210312
  Transmission Date: 20210420
  Serious: Yes (Other)
  Sender: FDA-Public Use
  Company Number: US-MYLANLABS-2021M1014605

PATIENT
  Sex: Male

DRUGS (9)
  1. COBICISTAT W/ELVITEGRAVIR/EMTRICITA/08773701/ [Suspect]
     Active Substance: COBICISTAT\ELVITEGRAVIR\EMTRICITABINE\TENOFOVIR
     Indication: ACQUIRED IMMUNODEFICIENCY SYNDROME
     Dosage: UNK
     Route: 065
  2. MIRTAZAPINE. [Concomitant]
     Active Substance: MIRTAZAPINE
     Indication: CENTRAL NERVOUS SYSTEM IMMUNE RECONSTITUTION INFLAMMATORY RESPONSE
  3. MARAVIROC [Concomitant]
     Active Substance: MARAVIROC
     Indication: CENTRAL NERVOUS SYSTEM IMMUNE RECONSTITUTION INFLAMMATORY RESPONSE
  4. COTRIMOXAZOLE [Concomitant]
     Active Substance: SULFAMETHOXAZOLE\TRIMETHOPRIM
     Indication: PNEUMOCYSTIS JIROVECII PNEUMONIA
     Dosage: UNK
     Route: 065
  5. PREDNISONE. [Suspect]
     Active Substance: PREDNISONE
     Indication: PNEUMOCYSTIS JIROVECII PNEUMONIA
     Dosage: UNK
     Route: 065
  6. PREDNISONE. [Suspect]
     Active Substance: PREDNISONE
     Indication: PROGRESSIVE MULTIFOCAL LEUKOENCEPHALOPATHY
  7. PREDNISONE. [Suspect]
     Active Substance: PREDNISONE
     Indication: CENTRAL NERVOUS SYSTEM IMMUNE RECONSTITUTION INFLAMMATORY RESPONSE
  8. MIRTAZAPINE. [Concomitant]
     Active Substance: MIRTAZAPINE
     Indication: PROGRESSIVE MULTIFOCAL LEUKOENCEPHALOPATHY
     Dosage: UNK
     Route: 065
  9. MARAVIROC [Concomitant]
     Active Substance: MARAVIROC
     Indication: PROGRESSIVE MULTIFOCAL LEUKOENCEPHALOPATHY
     Dosage: UNK
     Route: 065

REACTIONS (3)
  - Rebound effect [Recovering/Resolving]
  - Condition aggravated [Recovering/Resolving]
  - Progressive multifocal leukoencephalopathy [Recovered/Resolved]
